FAERS Safety Report 18654400 (Version 1)
Quarter: 2020Q4

REPORT INFORMATION
  Report Type: Spontaneous
  Country: DE (occurrence: DE)
  Receive Date: 20201223
  Receipt Date: 20201223
  Transmission Date: 20210114
  Serious: Yes (Other)
  Sender: FDA-Public Use
  Company Number: DE-TAKEDA-2020TEU011910

PATIENT
  Age: 76 Year
  Sex: Female
  Weight: 66 kg

DRUGS (4)
  1. XAGRID [Suspect]
     Active Substance: ANAGRELIDE HYDROCHLORIDE
     Indication: PLATELET COUNT DECREASED
     Dosage: UNK
     Route: 065
     Dates: start: 200812
  2. HIDROXYUREA [Concomitant]
     Indication: PRODUCT USED FOR UNKNOWN INDICATION
     Dosage: UNK
     Route: 065
     Dates: start: 200708
  3. ACETYLSALICYLIC ACID [Suspect]
     Active Substance: ASPIRIN
     Indication: PLATELET AGGREGATION INHIBITION
     Dosage: UNK
     Route: 065
     Dates: start: 200701
  4. MARCUMAR [Suspect]
     Active Substance: PHENPROCOUMON
     Indication: EMBOLISM ARTERIAL
     Dosage: UNK
     Route: 065
     Dates: start: 200812

REACTIONS (1)
  - Epistaxis [Unknown]

NARRATIVE: CASE EVENT DATE: 200901
